FAERS Safety Report 7401849-3 (Version None)
Quarter: 2011Q2

REPORT INFORMATION
  Report Type: 
  Country: None (occurrence: None)
  Receive Date: 20110408
  Receipt Date: 20091031
  Transmission Date: 20111010
  Serious: Yes (Hospitalization, Other)
  Sender: FDA-Public Use
  Company Number: US-BAYER-200937687NA

PATIENT
  Sex: Female
  Weight: 45.351 kg

DRUGS (31)
  1. ACETYLSALICYLIC ACID SRT [Concomitant]
     Dosage: 81 MG, QD
     Route: 048
  2. MAGNESIUM SULFATE [Concomitant]
     Dosage: 4 G, UNK
     Route: 042
     Dates: start: 20070124, end: 20070124
  3. FENTANYL [Concomitant]
     Dosage: UNK
     Route: 042
     Dates: start: 20070124, end: 20070124
  4. PAVULON [Concomitant]
     Dosage: UNK
     Route: 042
     Dates: start: 20070124, end: 20070124
  5. CIPROFLOXACIN [Concomitant]
     Dosage: UNK
     Dates: start: 20070209
  6. RED BLOOD CELLS [Concomitant]
     Dosage: 2 U, UNK
     Dates: start: 20070124
  7. VERSED [Concomitant]
     Dosage: UNK
     Route: 042
     Dates: start: 20070124, end: 20070124
  8. VANCOMYCIN [Concomitant]
     Dosage: UNK
     Dates: start: 20070524
  9. TRASYLOL [Suspect]
     Indication: AORTIC VALVE REPLACEMENT
     Dosage: 1 ML, ONCE INITIAL DOSE
     Route: 042
     Dates: start: 20070124, end: 20070124
  10. DOPAMINE [Concomitant]
     Dosage: UNK
     Route: 042
     Dates: start: 20070124
  11. OMNIPAQUE 140 [Concomitant]
     Indication: CATHETERISATION CARDIAC
     Dosage: 150 ML, UNK
     Dates: start: 20061109
  12. ATENOLOL [Concomitant]
     Dosage: 25 MG, QD
     Route: 048
  13. CALCIUM CHLORIDE [Concomitant]
     Dosage: UNK
     Route: 042
     Dates: start: 20070124, end: 20070124
  14. CIPROFLOXACIN [Concomitant]
     Indication: PNEUMONIA
     Dosage: UNK
     Dates: start: 20070130
  15. VANCOMYCIN [Concomitant]
     Dosage: UNK
     Dates: start: 20070205
  16. PROTAMINE SULFATE [Concomitant]
     Dosage: UNK
     Route: 042
     Dates: start: 20070124, end: 20070124
  17. PLATELETS [Concomitant]
     Dosage: 2 U, UNK
     Dates: start: 20070124
  18. SURFAK [Concomitant]
     Dosage: 1 G, QD
     Route: 048
  19. HEPARIN [Concomitant]
     Dosage: 32000 U, UNK
     Route: 042
     Dates: start: 20070124, end: 20070124
  20. KEFZOL [Concomitant]
     Dosage: UNK
     Route: 042
     Dates: start: 20070124
  21. UNCODEABLE ^UNCLASSIFIABLE^ [Concomitant]
     Dosage: 3.02/275 MG
     Route: 048
  22. INSULIN [Concomitant]
     Dosage: UNK
     Route: 042
     Dates: start: 20070124
  23. AZACTAM [Concomitant]
     Dosage: UNK
     Dates: start: 20070201
  24. CANCIDAS [Concomitant]
     Dosage: UNK
     Dates: start: 20070209
  25. TRASYLOL [Suspect]
     Indication: CORONARY ARTERY BYPASS
     Dosage: 200 ML, ONCE PUMP PRIME
     Dates: start: 20070124, end: 20070124
  26. TRASYLOL [Suspect]
     Indication: AORTIC ANASTOMOSIS
     Dosage: 200 ML, ONCE LOADING DOSE
     Dates: start: 20070124, end: 20070124
  27. TRASYLOL [Suspect]
     Dosage: 50 ML, Q1HR
     Dates: start: 20070124, end: 20070124
  28. FRESH FROZEN PLASMA [Concomitant]
     Dosage: 8 U, UNK
     Dates: start: 20070124
  29. FACTOR VII [Concomitant]
     Dosage: UNK
     Dates: start: 20070124
  30. CRESTOR [Concomitant]
     Dosage: 5 MG, QD
     Route: 048
  31. MORPHINE [Concomitant]
     Dosage: UNK
     Route: 042
     Dates: start: 20070124, end: 20070124

REACTIONS (5)
  - RENAL FAILURE [None]
  - INJURY [None]
  - PAIN [None]
  - MENTAL DISORDER [None]
  - UNEVALUABLE EVENT [None]
